FAERS Safety Report 9156249 (Version 1)
Quarter: 2013Q1

REPORT INFORMATION
  Report Type: Spontaneous
  Country: US (occurrence: US)
  Receive Date: 20130123
  Receipt Date: 20130123
  Transmission Date: 20140127
  Serious: No
  Sender: FDA-Public Use
  Company Number: US-BRACCO-007322

PATIENT
  Age: 35 Year
  Sex: Female
  Weight: 59 kg

DRUGS (1)
  1. MULTIHANCE [Suspect]
     Indication: NUCLEAR MAGNETIC RESONANCE IMAGING
     Dates: start: 20111213, end: 20111213

REACTIONS (5)
  - Headache [Recovered/Resolved]
  - Ocular discomfort [Recovered/Resolved]
  - Musculoskeletal pain [Unknown]
  - Parasomnia [Recovered/Resolved]
  - Poor quality sleep [Recovered/Resolved]
